FAERS Safety Report 7198462-2 (Version None)
Quarter: 2010Q4

REPORT INFORMATION
  Report Type: 
  Country: None (occurrence: None)
  Receive Date: 20101227
  Receipt Date: 20101220
  Transmission Date: 20110411
  Serious: Yes (Death)
  Sender: FDA-Public Use
  Company Number: PHHY2010US87525

PATIENT
  Sex: Female

DRUGS (17)
  1. RECLAST [Suspect]
     Dosage: 5 MG
     Route: 042
  2. OXYCODONE [Concomitant]
     Dosage: UNK
  3. COUMADIN [Concomitant]
     Dosage: UNK
  4. ALBUTEROL [Concomitant]
     Dosage: UNK
  5. IPRATROPIUM BROMIDE [Concomitant]
     Dosage: UNK
  6. CALCIUM [Concomitant]
     Dosage: UNK
  7. MAGNESIUM SUPPLEMENTS [Concomitant]
     Dosage: UNK
  8. PROTONIX [Concomitant]
     Dosage: UNK
  9. LEVOTHYROXINE [Concomitant]
     Dosage: UNK
  10. METOPROLOL TARTRATE [Concomitant]
     Dosage: UNK
  11. PHENERGAN [Concomitant]
     Dosage: UNK
  12. PREMARIN [Concomitant]
     Dosage: UNK
  13. PRILOSEC [Concomitant]
     Dosage: UNK
  14. PAXIL [Concomitant]
     Dosage: UNK
  15. PREDNISONE [Concomitant]
     Dosage: UNK
  16. KLONOPIN [Concomitant]
     Dosage: UNK
  17. ALBUTEROL [Concomitant]
     Dosage: UNK

REACTIONS (1)
  - DEATH [None]
